FAERS Safety Report 9131185 (Version 1)
Quarter: 2013Q1

REPORT INFORMATION
  Report Type: Spontaneous
  Country: DE (occurrence: DE)
  Receive Date: 20130301
  Receipt Date: 20130301
  Transmission Date: 20140127
  Serious: Yes (Other)
  Sender: FDA-Public Use
  Company Number: DE-AMGEN-DEUSP2013014031

PATIENT
  Age: 43 Year
  Sex: Female

DRUGS (3)
  1. ENBREL [Suspect]
     Indication: PRODUCT USED FOR UNKNOWN INDICATION
     Dosage: UNK
     Dates: start: 2012
  2. METHOTREXATE [Concomitant]
     Dosage: UNK UNK, UNK
  3. HYDROCORTISONE [Concomitant]
     Dosage: UNK UNK, UNK

REACTIONS (2)
  - Rheumatoid arthritis [Unknown]
  - Tooth disorder [Unknown]
